FAERS Safety Report 9470661 (Version 1)
Quarter: 2013Q3

REPORT INFORMATION
  Report Type: Spontaneous
  Country: US (occurrence: US)
  Receive Date: 20130822
  Receipt Date: 20130822
  Transmission Date: 20140515
  Serious: No
  Sender: FDA-Public Use
  Company Number: US-BAYER-2013-101635

PATIENT
  Sex: 0

DRUGS (6)
  1. ALEVE CAPLET [Suspect]
     Dosage: UNK
  2. TYLENOL PM [Concomitant]
     Dosage: UNK
  3. DAYQUIL [DEXTROMET HBR,PARACET,PSEUDOEPH HCL] [Concomitant]
  4. NYQUIL [Concomitant]
     Dosage: UNK
  5. SUDAFED [Concomitant]
     Dosage: UNK
  6. BC [Concomitant]

REACTIONS (1)
  - Drug ineffective [None]
